FAERS Safety Report 17036099 (Version 1)
Quarter: 2019Q4

REPORT INFORMATION
  Report Type: Spontaneous
  Country: US (occurrence: US)
  Receive Date: 20191016
  Receipt Date: 20191016
  Transmission Date: 20200122
  Serious: No
  Sender: FDA-Public Use
  Company Number: None

PATIENT
  Age: 36 Year
  Sex: Male

DRUGS (1)
  1. RITONAVIR TAB 100MG [Suspect]
     Active Substance: RITONAVIR
     Dosage: ?          OTHER FREQUENCY:OTHER;?
     Route: 048
     Dates: start: 201910

REACTIONS (3)
  - Product dose omission [None]
  - Wrong technique in product usage process [None]
  - Wrong schedule [None]

NARRATIVE: CASE EVENT DATE: 20191016
